FAERS Safety Report 10430845 (Version 1)
Quarter: 2014Q1

REPORT INFORMATION
  Report Type: Spontaneous
  Country: US (occurrence: None)
  Receive Date: 20140221
  Receipt Date: 20140221
  Transmission Date: 20141002
  Serious: No
  Sender: FDA-Public Use
  Company Number: 1000052205

PATIENT
  Sex: Male

DRUGS (3)
  1. TUDORZA PRESSAIR [Suspect]
     Indication: CHRONIC OBSTRUCTIVE PULMONARY DISEASE
     Route: 055
     Dates: start: 201312
  2. LISINOPRIL [Concomitant]
  3. PREDNISONE (PREDNISONE) (PREDNISONE) [Concomitant]

REACTIONS (1)
  - Drug ineffective [None]
